FAERS Safety Report 24891878 (Version 1)
Quarter: 2025Q1

REPORT INFORMATION
  Report Type: Spontaneous
  Country: SE (occurrence: SE)
  Receive Date: 20250127
  Receipt Date: 20250127
  Transmission Date: 20250408
  Serious: Yes (Hospitalization)
  Sender: BAUSCH AND LOMB
  Company Number: SE-BAUSCH-BL-2025-001007

PATIENT
  Age: 69 Year
  Sex: Male

DRUGS (17)
  1. TARGRETIN [Suspect]
     Active Substance: BEXAROTENE
     Indication: Cutaneous T-cell lymphoma
     Route: 065
     Dates: start: 20241114, end: 20241201
  2. TARGRETIN [Suspect]
     Active Substance: BEXAROTENE
     Route: 065
     Dates: start: 20241202
  3. CITALOPRAM [Concomitant]
     Active Substance: CITALOPRAM
     Indication: Product used for unknown indication
     Route: 065
     Dates: start: 20220223
  4. ALFUZOSIN ORION [Concomitant]
     Indication: Product used for unknown indication
     Route: 065
     Dates: start: 20240722
  5. EZETIMIB STADA [Concomitant]
     Indication: Product used for unknown indication
     Route: 065
     Dates: start: 20230526
  6. AMLODIPINE BESYLATE [Concomitant]
     Active Substance: AMLODIPINE BESYLATE
     Indication: Product used for unknown indication
     Route: 065
     Dates: start: 20221216
  7. UREA [Concomitant]
     Active Substance: UREA
     Indication: Product used for unknown indication
     Route: 065
     Dates: start: 20231212
  8. ATORVASTATIN CALCIUM [Concomitant]
     Active Substance: ATORVASTATIN CALCIUM
     Indication: Product used for unknown indication
     Route: 065
     Dates: start: 20240422
  9. CLOBETASOL [Concomitant]
     Active Substance: CLOBETASOL
     Indication: Product used for unknown indication
     Route: 065
     Dates: start: 20241112
  10. OXAZEPAM [Concomitant]
     Active Substance: OXAZEPAM
     Indication: Product used for unknown indication
     Route: 065
     Dates: start: 20220329
  11. ELOCON [Concomitant]
     Active Substance: MOMETASONE FUROATE
     Indication: Product used for unknown indication
     Route: 065
     Dates: start: 20241112
  12. KALCIPOS D FORTE [Concomitant]
     Indication: Product used for unknown indication
     Route: 065
     Dates: start: 20240405
  13. ALENDRONAT TEVA VECKOTABLETT [Concomitant]
     Indication: Product used for unknown indication
     Dosage: (70 MILLIGRAM(S), 1 IN 1 WEEK)
     Route: 065
     Dates: start: 20240405
  14. PREDNISOLONE [Concomitant]
     Active Substance: PREDNISOLONE
     Indication: Product used for unknown indication
     Route: 065
     Dates: start: 20240529
  15. FOLSYRA VITABALANS [Concomitant]
     Indication: Product used for unknown indication
     Route: 065
     Dates: start: 20240129
  16. ELIQUIS [Concomitant]
     Active Substance: APIXABAN
     Indication: Product used for unknown indication
     Route: 065
     Dates: start: 20221212
  17. METHOTREXATE SODIUM [Concomitant]
     Active Substance: METHOTREXATE SODIUM
     Indication: Product used for unknown indication
     Route: 065
     Dates: start: 20241112

REACTIONS (2)
  - Balance disorder [Recovering/Resolving]
  - Dizziness [Recovering/Resolving]

NARRATIVE: CASE EVENT DATE: 20241215
